FAERS Safety Report 4365949-7 (Version None)
Quarter: 2004Q2

REPORT INFORMATION
  Report Type: 
  Country: None (occurrence: None)
  Receive Date: 20040520
  Receipt Date: 20040517
  Transmission Date: 20050107
  Serious: Yes (Life-Threatening)
  Sender: FDA-Public Use
  Company Number: 200410330BNE

PATIENT
  Age: 58 Year
  Sex: Male

DRUGS (13)
  1. CIPROFLOXACIN [Suspect]
     Indication: LOWER RESPIRATORY TRACT INFECTION
     Dosage: 500 MG, BID, ORAL
     Route: 048
     Dates: start: 20040418, end: 20040427
  2. ZYPREXA [Suspect]
     Indication: SCHIZOPHRENIA
     Dosage: 20 MG, TOTAL DAILY, ORAL; 10 MG, TOTAL DAILY, ORAL
     Route: 048
  3. HALOPERIDOL [Concomitant]
  4. ZOPICLONE [Concomitant]
  5. SENNA [Concomitant]
  6. ALBUTEROL SULFATE [Concomitant]
  7. IPRATROPIUM BROMIDE [Concomitant]
  8. BECLOMETHASONE DIPROPIONATE [Concomitant]
  9. MIL-PAR [Concomitant]
  10. PREDNISOLONE [Concomitant]
  11. ACETAMINOPHEN [Concomitant]
  12. CODEINE [Concomitant]
  13. TINZAPARIN [Concomitant]

REACTIONS (3)
  - OXYGEN SATURATION DECREASED [None]
  - SOMNOLENCE [None]
  - UNRESPONSIVE TO PAIN STIMULI [None]
